FAERS Safety Report 18064909 (Version 1)
Quarter: 2020Q3

REPORT INFORMATION
  Report Type: Spontaneous
  Country: US (occurrence: US)
  Receive Date: 20200723
  Receipt Date: 20200723
  Transmission Date: 20201103
  Serious: No
  Sender: FDA-Public Use
  Company Number: None

PATIENT
  Age: 27 Year
  Sex: Female

DRUGS (1)
  1. HUMIRA [Suspect]
     Active Substance: ADALIMUMAB
     Indication: CROHN^S DISEASE
     Dosage: OTHER DOSE:40MG/0.4ML ;?
     Route: 058
     Dates: start: 20200603

REACTIONS (2)
  - Blepharospasm [None]
  - Rash erythematous [None]

NARRATIVE: CASE EVENT DATE: 202006
